FAERS Safety Report 20962468 (Version 1)
Quarter: 2022Q2

REPORT INFORMATION
  Report Type: Spontaneous
  Country: US (occurrence: US)
  Receive Date: 20220615
  Receipt Date: 20220615
  Transmission Date: 20220721
  Serious: No
  Sender: FDA-Public Use
  Company Number: US-BIOGEN-2022BI01090912

PATIENT
  Sex: Female

DRUGS (2)
  1. TECFIDERA [Suspect]
     Active Substance: DIMETHYL FUMARATE
     Indication: Multiple sclerosis
     Route: 048
     Dates: start: 202111, end: 202201
  2. TECFIDERA [Suspect]
     Active Substance: DIMETHYL FUMARATE
     Route: 048

REACTIONS (7)
  - Drug ineffective [Recovered/Resolved]
  - Band sensation [Not Recovered/Not Resolved]
  - Gastrointestinal pain [Unknown]
  - Balance disorder [Unknown]
  - Flushing [Recovered/Resolved]
  - Urticaria [Recovered/Resolved]
  - Diarrhoea [Recovered/Resolved]
